FAERS Safety Report 6389044-0 (Version None)
Quarter: 2009Q4

REPORT INFORMATION
  Report Type: 
  Country: None (occurrence: None)
  Receive Date: 20091001
  Receipt Date: 20090916
  Transmission Date: 20100525
  Serious: Yes (Death, Other)
  Sender: FDA-Public Use
  Company Number: 2009002827

PATIENT
  Age: 73 Year
  Sex: Male

DRUGS (13)
  1. ERLOTINIB HYDROCHLORIDE [Suspect]
     Indication: LUNG ADENOCARCINOMA
     Dosage: 150 MG, QD, ORAL
     Route: 048
     Dates: start: 20090303, end: 20090416
  2. OXYCONTIN (OXYCODONE HYDROCHLORIDE) (TABLET) [Suspect]
     Indication: LUNG ADENOCARCINOMA
     Dosage: 30 MG, QD, ORAL
     Route: 048
     Dates: start: 20090101
  3. LOXONIN (LOXOPROFEN SODIUM) [Concomitant]
  4. SELBEX (TEPRENONE) [Concomitant]
  5. MAGMITT [Concomitant]
  6. DEPAS (ETIZOLAM) [Concomitant]
  7. OXINORM (ORGOTEIN) [Concomitant]
  8. SENNOSIDE [Concomitant]
  9. NOVAMIN (PROCHLORPERAZINE) [Concomitant]
  10. VOLTAREN [Concomitant]
  11. TELEMIN-SOFT [Concomitant]
  12. LAXOBERON (SODIUM PICOSULFATE) [Concomitant]
  13. AZUNOL (SODIUM GUALENATE) [Concomitant]

REACTIONS (2)
  - MALAISE [None]
  - PNEUMONIA ASPIRATION [None]
